FAERS Safety Report 12617488 (Version 2)
Quarter: 2017Q2

REPORT INFORMATION
  Report Type: Spontaneous
  Country: BR (occurrence: BR)
  Receive Date: 20160803
  Receipt Date: 20170426
  Transmission Date: 20170830
  Serious: No
  Sender: FDA-Public Use
  Company Number: BR-LUPIN PHARMACEUTICALS INC.-2016-02070

PATIENT
  Age: 76 Year
  Sex: Female

DRUGS (1)
  1. MEMANTINE HYDROCHLORIDE. [Suspect]
     Active Substance: MEMANTINE HYDROCHLORIDE
     Indication: DEMENTIA ALZHEIMER^S TYPE
     Dosage: 21 MG,BID,
     Route: 065

REACTIONS (4)
  - Dystonia [Recovered/Resolved]
  - Chorea [Recovered/Resolved]
  - Inappropriate schedule of drug administration [Unknown]
  - Drug administration error [Unknown]
